FAERS Safety Report 18272941 (Version 1)
Quarter: 2020Q3

REPORT INFORMATION
  Report Type: Spontaneous
  Country: US (occurrence: US)
  Receive Date: 20200916
  Receipt Date: 20200916
  Transmission Date: 20201103
  Serious: Yes (Other)
  Sender: FDA-Public Use
  Company Number: US-FRESENIUS KABI-FK202009444

PATIENT
  Age: 82 Year
  Sex: Male

DRUGS (3)
  1. DEGARELIX [Suspect]
     Active Substance: DEGARELIX
     Indication: LACRIMAL GLAND NEOPLASM
     Dosage: LOADING DOSE: 250 MG
     Route: 065
  2. BICALUTAMIDE (MANUFACTURER UNKNOWN) [Suspect]
     Active Substance: BICALUTAMIDE
     Route: 048
  3. BICALUTAMIDE (MANUFACTURER UNKNOWN) [Suspect]
     Active Substance: BICALUTAMIDE
     Indication: LACRIMAL GLAND NEOPLASM
     Route: 048

REACTIONS (3)
  - Erectile dysfunction [Recovering/Resolving]
  - Loss of libido [Recovering/Resolving]
  - Hot flush [Unknown]
